FAERS Safety Report 17504048 (Version 3)
Quarter: 2020Q2

REPORT INFORMATION
  Report Type: Report from Study
  Country: JP (occurrence: JP)
  Receive Date: 20200305
  Receipt Date: 20200403
  Transmission Date: 20200713
  Serious: Yes (Hospitalization)
  Sender: FDA-Public Use
  Company Number: JP-BIOMARINAP-JP-2020-128810

PATIENT
  Age: 3 Year
  Sex: Male
  Weight: 12.5 kg

DRUGS (3)
  1. NASONEX [Concomitant]
     Active Substance: MOMETASONE FUROATE
     Indication: RHINITIS
     Dosage: 50 MICROGRAM, QD
     Route: 045
     Dates: end: 20190905
  2. XYZAL [Concomitant]
     Active Substance: LEVOCETIRIZINE DIHYDROCHLORIDE
     Indication: PREMEDICATION
     Dosage: 1.25 MILLIGRAM
     Route: 048
  3. VIMIZIM [Suspect]
     Active Substance: ELOSULFASE ALFA
     Indication: MUCOPOLYSACCHARIDOSIS IV
     Dosage: 2 MILLIGRAM/KILOGRAM, QW
     Route: 042
     Dates: start: 20170926

REACTIONS (5)
  - Clonus [Unknown]
  - Cervical cord compression [Recovering/Resolving]
  - Decreased appetite [Unknown]
  - Growth retardation [Unknown]
  - Monoplegia [Unknown]

NARRATIVE: CASE EVENT DATE: 20190226
